FAERS Safety Report 16080766 (Version 1)
Quarter: 2019Q1

REPORT INFORMATION
  Report Type: Report from Study
  Country: CA (occurrence: CA)
  Receive Date: 20190316
  Receipt Date: 20190316
  Transmission Date: 20190418
  Serious: Yes (Other)
  Sender: FDA-Public Use
  Company Number: CA-TAKEDA-2019TUS013405

PATIENT
  Age: 42 Year
  Sex: Female

DRUGS (2)
  1. SALOFALK                           /00000301/ [Concomitant]
     Active Substance: MESALAMINE
     Dosage: UNK
  2. VEDOLIZUMAB [Suspect]
     Active Substance: VEDOLIZUMAB
     Indication: COLITIS ULCERATIVE
     Dosage: 300 MILLIGRAM
     Route: 042
     Dates: start: 20180716

REACTIONS (2)
  - Limb injury [Not Recovered/Not Resolved]
  - Surgical fixation of rib fracture [Not Recovered/Not Resolved]

NARRATIVE: CASE EVENT DATE: 2019
